FAERS Safety Report 8366478-6 (Version None)
Quarter: 2012Q2

REPORT INFORMATION
  Report Type: 
  Country: None (occurrence: None)
  Receive Date: 20120517
  Receipt Date: 20120511
  Transmission Date: 20120825
  Serious: Yes (Other)
  Sender: FDA-Public Use
  Company Number: FR-SANOFI-AVENTIS-2011SA082118

PATIENT
  Age: 57 Year
  Sex: Female

DRUGS (8)
  1. ESCITALOPRAM [Concomitant]
     Route: 048
  2. ARAVA [Suspect]
     Indication: RHEUMATOID ARTHRITIS
     Route: 048
     Dates: start: 20111108, end: 20111129
  3. LYRICA [Concomitant]
     Route: 048
  4. ARAVA [Suspect]
     Route: 048
     Dates: start: 20111108, end: 20111129
  5. COAPROVEL [Concomitant]
     Route: 048
  6. TRAMADOL HYDROCHLORIDE [Concomitant]
     Route: 048
  7. MEDIATENSYL [Concomitant]
     Route: 048
  8. ACETAMINOPHEN [Concomitant]
     Route: 048

REACTIONS (3)
  - PETECHIAE [None]
  - MOUTH ULCERATION [None]
  - RASH [None]
